FAERS Safety Report 7336900-2 (Version None)
Quarter: 2011Q1

REPORT INFORMATION
  Report Type: 
  Country: None (occurrence: None)
  Receive Date: 20110308
  Receipt Date: 20110228
  Transmission Date: 20110831
  Serious: No
  Sender: FDA-Public Use
  Company Number: US-BIOGENIDEC-2011BI007942

PATIENT
  Age: 54 Year
  Sex: Female

DRUGS (1)
  1. TYSABRI [Suspect]
     Indication: MULTIPLE SCLEROSIS
     Route: 042
     Dates: start: 20091104

REACTIONS (7)
  - VISUAL IMPAIRMENT [None]
  - DYSGEUSIA [None]
  - MALNUTRITION [None]
  - TYPE 1 DIABETES MELLITUS [None]
  - FALL [None]
  - ARTHROPATHY [None]
  - DECREASED APPETITE [None]
